FAERS Safety Report 9192859 (Version 6)
Quarter: 2013Q2

REPORT INFORMATION
  Report Type: Report from Study
  Country: BR (occurrence: BR)
  Receive Date: 20130327
  Receipt Date: 20130523
  Transmission Date: 20140414
  Serious: Yes (Death, Hospitalization)
  Sender: FDA-Public Use
  Company Number: PHHO2013BR004086

PATIENT
  Age: 61 Year
  Sex: Male
  Weight: 50 kg

DRUGS (6)
  1. GP2013 [Suspect]
     Indication: NON-HODGKIN^S LYMPHOMA
     Dosage: 375 MG/M2, UNK
     Route: 042
     Dates: start: 20121018, end: 20130314
  2. PREDNISONE [Suspect]
     Indication: CHEMOTHERAPY
     Dosage: 100 MG, UNK
     Route: 048
     Dates: start: 20121018, end: 20130318
  3. VINCRISTINE [Suspect]
     Indication: CHEMOTHERAPY
     Dosage: 1.4 MG/M2, UNK
     Route: 042
     Dates: start: 20121018, end: 20130314
  4. CYCLOPHOSPHAMIDE [Suspect]
     Indication: CHEMOTHERAPY
     Dosage: 750 MG/M2, UNK
     Route: 042
     Dates: start: 20121018, end: 20130314
  5. CLONAZEPAM [Concomitant]
     Indication: ANXIETY
     Dosage: 0.5 MG, QD
     Dates: start: 20130313
  6. RACECADOTRIL [Concomitant]
     Indication: DIARRHOEA
     Dosage: 100 MG, 12/12 H
     Dates: start: 20130313, end: 20130318

REACTIONS (6)
  - Septic shock [Fatal]
  - Respiratory failure [Fatal]
  - Febrile neutropenia [Recovered/Resolved]
  - Renal failure [Not Recovered/Not Resolved]
  - Bronchopneumonia [Not Recovered/Not Resolved]
  - Leukopenia [Recovered/Resolved]
